FAERS Safety Report 10083262 (Version 1)
Quarter: 2014Q2

REPORT INFORMATION
  Report Type: Spontaneous
  Country: US (occurrence: None)
  Receive Date: 20140416
  Receipt Date: 20140416
  Transmission Date: 20141212
  Serious: Yes (Other)
  Sender: FDA-Public Use
  Company Number: None

PATIENT
  Age: 42 Year
  Sex: Female

DRUGS (1)
  1. CIMZIA [Suspect]
     Indication: CROHN^S DISEASE
     Route: 058
     Dates: start: 20120215

REACTIONS (7)
  - Amnesia [None]
  - Confusional state [None]
  - Blister [None]
  - Gait disturbance [None]
  - Hypoaesthesia [None]
  - Paraesthesia [None]
  - Unevaluable event [None]
